FAERS Safety Report 14250983 (Version 3)
Quarter: 2018Q1

REPORT INFORMATION
  Report Type: Report from Study
  Country: US (occurrence: US)
  Receive Date: 20171205
  Receipt Date: 20180123
  Transmission Date: 20180508
  Serious: Yes (Hospitalization, Other)
  Sender: FDA-Public Use
  Company Number: PHHO2016US017281

PATIENT
  Age: 19 Year
  Sex: Male
  Weight: 83.6 kg

DRUGS (3)
  1. PREDNISONE. [Suspect]
     Active Substance: PREDNISONE
     Indication: OBLITERATIVE BRONCHIOLITIS
     Dosage: VARIED-TAPER
     Route: 065
     Dates: start: 20150813, end: 20151030
  2. DELTASONE [Suspect]
     Active Substance: PREDNISONE
     Indication: OBLITERATIVE BRONCHIOLITIS
     Dosage: VARIED-TAPER
     Route: 065
     Dates: start: 20150813, end: 20151030
  3. HSC835 [Suspect]
     Active Substance: INVESTIGATIONAL PRODUCT
     Indication: STEM CELL TRANSPLANT
     Dosage: 1.7 X 10^7 NC/KG
     Route: 042
     Dates: start: 20150414, end: 20150414

REACTIONS (2)
  - Hip fracture [Recovered/Resolved]
  - Osteonecrosis [Not Recovered/Not Resolved]

NARRATIVE: CASE EVENT DATE: 20160609
